FAERS Safety Report 15314983 (Version 10)
Quarter: 2025Q4

REPORT INFORMATION
  Report Type: Spontaneous
  Country: EU (occurrence: EU)
  Receive Date: 20180824
  Receipt Date: 20251009
  Transmission Date: 20260117
  Serious: Yes (Life-Threatening, Hospitalization, Other)
  Sender: AUROBINDO
  Company Number: EU-AUROBINDO-AUR-APL-2018-043176

PATIENT
  Age: 61 Year
  Sex: Male

DRUGS (27)
  1. ACETAMINOPHEN [Suspect]
     Active Substance: ACETAMINOPHEN
     Indication: Pain
     Dosage: UNK
     Route: 065
     Dates: start: 201710
  2. ACETAMINOPHEN [Suspect]
     Active Substance: ACETAMINOPHEN
     Indication: Analgesic therapy
  3. MYCOPHENOLATE MOFETIL [Suspect]
     Active Substance: MYCOPHENOLATE MOFETIL
     Indication: Renal transplant
     Dosage: 2 GRAM, ONCE A DAY
     Route: 065
     Dates: start: 201710, end: 201710
  4. MYCOPHENOLATE MOFETIL [Suspect]
     Active Substance: MYCOPHENOLATE MOFETIL
     Indication: Immunosuppression
     Dosage: 1500 MILLIGRAM, ONCE A DAY
     Route: 065
  5. CEFTRIAXONE [Suspect]
     Active Substance: CEFTRIAXONE
     Indication: Immunosuppression
     Dosage: UNK
     Route: 065
  6. CEFTRIAXONE [Suspect]
     Active Substance: CEFTRIAXONE
     Indication: Antibiotic prophylaxis
  7. CALCIUM [Suspect]
     Active Substance: CALCIUM
     Indication: Immunosuppression
     Dosage: UNK
     Route: 065
  8. CHOLECALCIFEROL [Suspect]
     Active Substance: CHOLECALCIFEROL
     Indication: Product used for unknown indication
     Dosage: UNK
     Route: 065
  9. FUROSEMIDE [Suspect]
     Active Substance: FUROSEMIDE
     Indication: Product used for unknown indication
     Dosage: UNK
     Route: 065
  10. MORPHINE SULFATE [Suspect]
     Active Substance: MORPHINE SULFATE
     Indication: Pain
     Dosage: UNK
     Route: 065
     Dates: start: 201710
  11. MORPHINE SULFATE [Suspect]
     Active Substance: MORPHINE SULFATE
     Indication: Immunosuppression
  12. SULFAMETHOXAZOLE [Suspect]
     Active Substance: SULFAMETHOXAZOLE
     Indication: Immunosuppression
     Dosage: UNK
     Route: 065
  13. PREDNISOLONE [Suspect]
     Active Substance: PREDNISOLONE
     Indication: Renal transplant
     Dosage: 20 MILLIGRAM, ONCE A DAY
     Route: 065
     Dates: start: 201710, end: 201710
  14. PREDNISOLONE [Suspect]
     Active Substance: PREDNISOLONE
     Indication: Immunosuppression
     Dosage: 15 MILLIGRAM, ONCE A DAY
     Route: 065
     Dates: start: 201710
  15. SIMULECT [Suspect]
     Active Substance: BASILIXIMAB
     Indication: Immunosuppression
     Dosage: 14 MILLIGRAM, ONCE A DAY
     Route: 065
     Dates: start: 201710
  16. SIMULECT [Suspect]
     Active Substance: BASILIXIMAB
     Indication: Renal transplant
  17. TACROLIMUS [Suspect]
     Active Substance: TACROLIMUS
     Indication: Immunosuppression
     Dosage: 14 MILLIGRAM, ONCE A DAY
     Route: 065
     Dates: start: 201710, end: 201710
  18. TACROLIMUS [Suspect]
     Active Substance: TACROLIMUS
     Indication: Renal transplant
     Dosage: 10 MILLIGRAM, ONCE A DAY
     Route: 065
     Dates: start: 201710, end: 201710
  19. TACROLIMUS [Suspect]
     Active Substance: TACROLIMUS
     Dosage: 9 MILLIGRAM, ONCE A DAY
     Route: 065
     Dates: start: 201710, end: 201710
  20. TACROLIMUS [Suspect]
     Active Substance: TACROLIMUS
     Dosage: 2 MILLIGRAM, ONCE A DAY
     Route: 065
     Dates: start: 201710, end: 201710
  21. TACROLIMUS [Suspect]
     Active Substance: TACROLIMUS
     Dosage: 2 MILLIGRAM, ONCE A DAY
     Route: 065
     Dates: start: 201710
  22. VITAMIN D3 [Suspect]
     Active Substance: CHOLECALCIFEROL
     Indication: Immunosuppression
     Dosage: UNK
     Route: 065
  23. VITAMIN D [Suspect]
     Active Substance: VITAMIN D NOS
     Indication: Immunosuppression
     Dosage: UNK
     Route: 065
  24. SIMULECT [Concomitant]
     Active Substance: BASILIXIMAB
     Indication: Immunosuppression
     Dosage: 14 MILLIGRAM, ONCE A DAY
     Route: 065
     Dates: start: 201710
  25. SIMULECT [Concomitant]
     Active Substance: BASILIXIMAB
     Indication: Renal transplant
     Dosage: UNK
     Route: 065
     Dates: start: 201710
  26. ACETAMINOPHEN [Concomitant]
     Active Substance: ACETAMINOPHEN
     Indication: Product used for unknown indication
     Dosage: UNK
     Route: 065
  27. PIPERACILLIN AND TAZOBACTAM [Concomitant]
     Active Substance: PIPERACILLIN SODIUM\TAZOBACTAM SODIUM
     Indication: Product used for unknown indication
     Dosage: UNK
     Route: 065

REACTIONS (6)
  - Sphincter of Oddi dysfunction [Unknown]
  - Hypertriglyceridaemia [Unknown]
  - Delayed graft function [Unknown]
  - Diarrhoea [Recovered/Resolved]
  - Pancreatitis acute [Recovered/Resolved]
  - Abdominal pain [Recovered/Resolved]

NARRATIVE: CASE EVENT DATE: 20171001
